FAERS Safety Report 8272294-6 (Version None)
Quarter: 2012Q2

REPORT INFORMATION
  Report Type: 
  Country: None (occurrence: None)
  Receive Date: 20120410
  Receipt Date: 20120326
  Transmission Date: 20120825
  Serious: Yes (Hospitalization, Other)
  Sender: FDA-Public Use
  Company Number: US-WATSON-2012-05173

PATIENT
  Age: 9 Year
  Sex: Female

DRUGS (1)
  1. IBUPROFEN [Suspect]
     Indication: VIRAL INFECTION
     Dosage: NO MORE THAN 10 MG/KG, Q8H
     Route: 065

REACTIONS (5)
  - VANISHING BILE DUCT SYNDROME [None]
  - BILIARY TRACT DISORDER [None]
  - PANCREATITIS [None]
  - HEPATITIS CHOLESTATIC [None]
  - STEVENS-JOHNSON SYNDROME [None]
